FAERS Safety Report 15746691 (Version 1)
Quarter: 2018Q4

REPORT INFORMATION
  Report Type: Spontaneous
  Country: US (occurrence: US)
  Receive Date: 20181220
  Receipt Date: 20181220
  Transmission Date: 20190205
  Serious: No
  Sender: FDA-Public Use
  Company Number: US-PRINSTON PHARMACEUTICAL INC.-2018PRN01169

PATIENT
  Sex: Male

DRUGS (1)
  1. VALSARTAN. [Suspect]
     Active Substance: VALSARTAN
     Dosage: 320 MG, 1X/DAY
     Route: 048
     Dates: start: 201807

REACTIONS (3)
  - Recalled product administered [Unknown]
  - Skin discolouration [Unknown]
  - Papule [Unknown]

NARRATIVE: CASE EVENT DATE: 201807
